FAERS Safety Report 16251900 (Version 2)
Quarter: 2019Q3

REPORT INFORMATION
  Report Type: Spontaneous
  Country: JP (occurrence: JP)
  Receive Date: 20190429
  Receipt Date: 20190701
  Transmission Date: 20191004
  Serious: Yes (Other)
  Sender: FDA-Public Use
  Company Number: JP-PFIZER INC-2019171900

PATIENT
  Age: 39 Year
  Sex: Female
  Weight: 47 kg

DRUGS (15)
  1. LYRICA [Suspect]
     Active Substance: PREGABALIN
     Dosage: 75 MG, ONCE DAILY IN THE MORNING
     Route: 048
     Dates: start: 20190308, end: 20190405
  2. LYRICA [Suspect]
     Active Substance: PREGABALIN
     Indication: NEURALGIA
     Dosage: 50 MG, 1X/DAY
     Route: 048
     Dates: start: 20180810, end: 20180907
  3. TARLIGE [Concomitant]
     Dosage: 10 MG, 2X/DAY
     Route: 048
     Dates: start: 20190525
  4. LOXOPROFEN [Concomitant]
     Active Substance: LOXOPROFEN
     Dosage: UNK
  5. LYRICA [Suspect]
     Active Substance: PREGABALIN
     Indication: NEURALGIA
     Dosage: 75 MG, ONCE DAILY BEFORE BEDTIME
     Route: 048
     Dates: start: 20180907, end: 20190405
  6. TRYPTANOL [AMITRIPTYLINE HYDROCHLORIDE] [Concomitant]
     Dosage: 25 MG, 1X/DAY
     Route: 048
     Dates: start: 20180824, end: 20181215
  7. TRYPTANOL [AMITRIPTYLINE HYDROCHLORIDE] [Concomitant]
     Dosage: 10 MG, ONCE DAILY IN THE MORNING
     Route: 048
     Dates: start: 20190125
  8. TRYPTANOL [AMITRIPTYLINE HYDROCHLORIDE] [Concomitant]
     Dosage: 25 MG, ONCE DAILY BEFORE BEDTIME
     Route: 048
     Dates: start: 20190125
  9. TARLIGE [Concomitant]
     Indication: NEURALGIA
     Dosage: 25 MG, 2X/DAY
     Route: 048
     Dates: start: 20190510, end: 20190525
  10. NORITREN [Concomitant]
     Active Substance: NORTRIPTYLINE HYDROCHLORIDE
     Indication: NEURALGIA
     Dosage: 25 MG, 1X/DAY
     Route: 048
     Dates: start: 20181215, end: 20190125
  11. LYRICA [Suspect]
     Active Substance: PREGABALIN
     Dosage: 25 MG, ONCE DAILY IN THE MORNING
     Route: 048
     Dates: start: 20181019, end: 20190308
  12. LYRICA [Suspect]
     Active Substance: PREGABALIN
     Dosage: 25 MG, ONCE DAILY IN THE MORNING
     Route: 048
     Dates: start: 20190405, end: 20190510
  13. LYRICA [Suspect]
     Active Substance: PREGABALIN
     Dosage: 75 MG, ONCE DAILY BEFORE BEDTIME
     Route: 048
     Dates: start: 20190419, end: 20190510
  14. LYRICA [Suspect]
     Active Substance: PREGABALIN
     Indication: NEURALGIA
     Dosage: 150 MG, ONCE DAILY BEFORE BEDTIME
     Route: 048
     Dates: start: 20190405, end: 20190419
  15. TRYPTANOL [AMITRIPTYLINE HYDROCHLORIDE] [Concomitant]
     Indication: NEURALGIA
     Dosage: 10 MG, 1X/DAY
     Route: 048
     Dates: start: 20180810, end: 20180824

REACTIONS (2)
  - Haemorrhage subcutaneous [Not Recovered/Not Resolved]
  - Purpura [Not Recovered/Not Resolved]
